FAERS Safety Report 9632644 (Version 2)
Quarter: 2013Q4

REPORT INFORMATION
  Report Type: Report from Study
  Country: US (occurrence: US)
  Receive Date: 20131018
  Receipt Date: 20131018
  Transmission Date: 20140711
  Serious: Yes (Other)
  Sender: FDA-Public Use
  Company Number: PHEH2013US020409

PATIENT
  Age: 33 Year
  Sex: Female

DRUGS (1)
  1. TOBI [Suspect]
     Indication: CYSTIC FIBROSIS
     Dosage: 300 MG, BID

REACTIONS (4)
  - Tracheal diverticulum [Unknown]
  - Abscess [Unknown]
  - Nerve injury [Unknown]
  - Dysphonia [Recovering/Resolving]
